FAERS Safety Report 15418218 (Version 1)
Quarter: 2018Q3

REPORT INFORMATION
  Report Type: Other
  Country: CN (occurrence: CN)
  Receive Date: 20180924
  Receipt Date: 20180924
  Transmission Date: 20181010
  Serious: Yes (Life-Threatening, Hospitalization)
  Sender: FDA-Public Use
  Company Number: CN-NOSTRUM LABORATORIES, INC.-2055258

PATIENT
  Age: 42 Year
  Sex: Female

DRUGS (1)
  1. METFORMIN HYDROCHLORIDE EXTENDED?RELEASE [Suspect]
     Active Substance: METFORMIN HYDROCHLORIDE
     Indication: PRODUCT USED FOR UNKNOWN INDICATION
     Route: 048

REACTIONS (4)
  - Hypoglycaemia [Recovered/Resolved]
  - Hypotension [Recovered/Resolved]
  - Lactic acidosis [Recovered/Resolved]
  - Cardio-respiratory arrest [Recovered/Resolved]
